FAERS Safety Report 8570277-X (Version None)
Quarter: 2012Q3

REPORT INFORMATION
  Report Type: 
  Country: None (occurrence: None)
  Receive Date: 20120803
  Receipt Date: 20120730
  Transmission Date: 20120928
  Serious: Yes (Life-Threatening, Hospitalization, Other)
  Sender: FDA-Public Use
  Company Number: TH-ROCHE-1061925

PATIENT
  Sex: Female
  Weight: 53 kg

DRUGS (15)
  1. ACTEMRA [Suspect]
     Route: 042
     Dates: start: 20110712
  2. MEROPENEM [Concomitant]
     Indication: PNEUMONIA
     Dates: start: 20120416, end: 20120429
  3. DIGOXIN [Concomitant]
     Indication: ATRIAL FIBRILLATION
     Dates: start: 20120418, end: 20120418
  4. ACTEMRA [Suspect]
     Indication: RHEUMATOID ARTHRITIS
     Dosage: LAST DOSE PRIOR TO THE EVENT: 06/DEC/2011
     Route: 042
     Dates: start: 20091224
  5. PREDNISOLONE [Concomitant]
     Route: 048
  6. ACTEMRA [Suspect]
     Route: 042
     Dates: start: 20111010
  7. ACTEMRA [Suspect]
     Route: 042
     Dates: start: 20111107
  8. SULFASALAZINE [Concomitant]
     Route: 048
  9. AMIODARONE HCL [Concomitant]
     Dates: start: 20120502
  10. MEROPENEM [Concomitant]
     Dates: start: 20120503, end: 20120509
  11. AMIODARONE HCL [Concomitant]
     Indication: ATRIAL FIBRILLATION
     Dates: start: 20120418, end: 20120501
  12. CARVEDILOL [Concomitant]
     Indication: ATRIAL FIBRILLATION
     Dates: start: 20120410, end: 20120425
  13. ACTEMRA [Suspect]
     Route: 042
     Dates: start: 20111206
  14. AMLODIPINE [Concomitant]
     Indication: HYPERTENSION
     Route: 048
  15. PLACEBO [Suspect]
     Indication: RHEUMATOID ARTHRITIS

REACTIONS (5)
  - ISCHAEMIC STROKE [None]
  - ACUTE MYOCARDIAL INFARCTION [None]
  - ATRIAL FIBRILLATION [None]
  - PNEUMONIA [None]
  - ISCHAEMIC CEREBRAL INFARCTION [None]
